FAERS Safety Report 7955284-X (Version None)
Quarter: 2011Q4

REPORT INFORMATION
  Report Type: 
  Country: None (occurrence: None)
  Receive Date: 20111202
  Receipt Date: 20111201
  Transmission Date: 20120403
  Serious: No
  Sender: FDA-Public Use
  Company Number: US-BAYER-2011-115730

PATIENT
  Age: 66 Year
  Sex: Female

DRUGS (2)
  1. ULTRAVIST 150 [Suspect]
     Indication: COMPUTERISED TOMOGRAM THORAX
     Dosage: 80 ML, ONCE
     Route: 042
     Dates: start: 20111130, end: 20111130
  2. CONTRAST MEDIA [Concomitant]
     Indication: COMPUTERISED TOMOGRAM THORAX
     Dosage: UNK
     Route: 048
     Dates: start: 20111130, end: 20111130

REACTIONS (2)
  - PRURITUS [None]
  - URTICARIA [None]
